FAERS Safety Report 7293016-1 (Version None)
Quarter: 2011Q1

REPORT INFORMATION
  Report Type: 
  Country: None (occurrence: None)
  Receive Date: 20110215
  Receipt Date: 20110131
  Transmission Date: 20110831
  Serious: Yes (Death, Hospitalization, Other)
  Sender: FDA-Public Use
  Company Number: JP-ROCHE-723216

PATIENT
  Sex: Female
  Weight: 55 kg

DRUGS (16)
  1. AVASTIN [Suspect]
     Route: 041
     Dates: start: 20100225, end: 20100618
  2. 5-FU [Suspect]
     Indication: COLON CANCER METASTATIC
     Dosage: DOSAGE IS UNCERTAIN
     Route: 041
  3. 5-FU [Suspect]
     Dosage: NOTE: DOSAGE IS UNCERTAIN
     Route: 041
     Dates: start: 20081001, end: 20090830
  4. 5-FU [Suspect]
     Route: 041
     Dates: start: 20090929, end: 20100110
  5. LEVOFOLINATE [Suspect]
     Route: 041
     Dates: start: 20100225, end: 20100618
  6. AVASTIN [Suspect]
     Indication: COLON CANCER METASTATIC
     Dosage: NOTE: DOSAGE IS UNCERTAIN
     Route: 041
     Dates: start: 20081001, end: 20090830
  7. 5-FU [Suspect]
     Route: 041
     Dates: start: 20081001, end: 20090801
  8. LEVOFOLINATE [Suspect]
     Indication: COLON CANCER METASTATIC
     Dosage: DOSAGE IS UNCERTAIN
     Route: 041
  9. ELPLAT [Suspect]
     Route: 041
     Dates: start: 20100225, end: 20100618
  10. 5-FU [Suspect]
     Route: 041
     Dates: start: 20100225, end: 20100601
  11. AVASTIN [Suspect]
     Route: 041
     Dates: start: 20090929, end: 20100110
  12. 5-FU [Suspect]
     Route: 041
     Dates: start: 20100225, end: 20100618
  13. LEVOFOLINATE [Suspect]
     Dosage: NOTE: DOSAGE IS UNCERTAIN
     Route: 041
     Dates: start: 20081001, end: 20090830
  14. LEVOFOLINATE [Suspect]
     Route: 041
     Dates: start: 20090929, end: 20100110
  15. ELPLAT [Suspect]
     Indication: COLON CANCER METASTATIC
     Dosage: NOTE: DOSAGE IS UNCERTAIN
     Route: 041
     Dates: start: 20081001, end: 20090830
  16. IRINOTECAN HYDROCHLORIDE [Concomitant]
     Dosage: NOTE: DOSAGE IS UNCERTAIN
     Route: 041
     Dates: start: 20090929, end: 20100110

REACTIONS (11)
  - GASTRIC ULCER [None]
  - ABDOMINAL DISTENSION [None]
  - MALIGNANT PLEURAL EFFUSION [None]
  - GASTROINTESTINAL PERFORATION [None]
  - ABDOMINAL PAIN [None]
  - SHORT-BOWEL SYNDROME [None]
  - WOUND DEHISCENCE [None]
  - RESPIRATORY FAILURE [None]
  - PERITONITIS [None]
  - VOMITING [None]
  - HYPERGLYCAEMIA [None]
